FAERS Safety Report 17274277 (Version 2)
Quarter: 2020Q2

REPORT INFORMATION
  Report Type: Spontaneous
  Country: DE (occurrence: DE)
  Receive Date: 20200115
  Receipt Date: 20200608
  Transmission Date: 20200713
  Serious: Yes (Other)
  Sender: FDA-Public Use
  Company Number: DE-BAUSCH-BL-2020-000512

PATIENT
  Age: 70 Year
  Sex: Female

DRUGS (9)
  1. DEXAMETHASONE. [Suspect]
     Active Substance: DEXAMETHASONE
     Indication: DIFFUSE LARGE B-CELL LYMPHOMA
     Dosage: 2ND LINE R-DHAX 3R, HD-TEAM PLUS AST 1R
     Route: 065
     Dates: start: 201807, end: 201810
  2. CYTARABINE. [Suspect]
     Active Substance: CYTARABINE
     Indication: DIFFUSE LARGE B-CELL LYMPHOMA
     Dosage: 2ND LINE R-DHAX 3R, HD-TEAM PLUS AST 1R
     Route: 065
     Dates: start: 201807, end: 201810
  3. THIOTEPA. [Suspect]
     Active Substance: THIOTEPA
     Indication: DIFFUSE LARGE B-CELL LYMPHOMA
     Dosage: 2ND LINE R-DHAX 3R, HD-TEAM PLUS AST 1R
     Route: 065
     Dates: start: 201807, end: 201810
  4. ETOPOSID [Suspect]
     Active Substance: ETOPOSIDE
     Indication: DIFFUSE LARGE B-CELL LYMPHOMA
     Dosage: 2ND LINE R-DHAX 3R, HD-TEAM PLUS AST 1R
     Route: 065
     Dates: start: 201807, end: 201810
  5. RITUXIMAB. [Suspect]
     Active Substance: RITUXIMAB
     Indication: DIFFUSE LARGE B-CELL LYMPHOMA
     Dosage: 1ST LINE, R-CHOP REGIMEN 6 CYCLES X2R
     Route: 065
     Dates: start: 201712, end: 201803
  6. RITUXIMAB. [Suspect]
     Active Substance: RITUXIMAB
     Dosage: 2ND LINE R-DHAX 3R, HD-TEAM MIT AST 1R
     Route: 065
     Dates: start: 201807, end: 201810
  7. OXALIPLATIN. [Suspect]
     Active Substance: OXALIPLATIN
     Indication: DIFFUSE LARGE B-CELL LYMPHOMA
     Dosage: 2ND LINE R-DHAX 3R, HD-TEAM PLUS AST 1R
     Route: 065
     Dates: start: 201807, end: 201810
  8. MELPHALAN. [Suspect]
     Active Substance: MELPHALAN
     Indication: DIFFUSE LARGE B-CELL LYMPHOMA
     Dosage: 2ND LINE R-DHAX 3R, HD-TEAM PLUS AST 1R
     Route: 065
     Dates: start: 201807, end: 201810
  9. CHOP [Suspect]
     Active Substance: CYCLOPHOSPHAMIDE\DOXORUBICIN\PREDNISONE\VINCRISTINE
     Indication: DIFFUSE LARGE B-CELL LYMPHOMA
     Dosage: 1ST LINE, R-CHOP REGIMEN 6 CYCLES X2R
     Route: 065
     Dates: start: 201712, end: 201803

REACTIONS (3)
  - Haemoglobin decreased [Unknown]
  - Platelet count decreased [Unknown]
  - Diarrhoea [Recovered/Resolved]

NARRATIVE: CASE EVENT DATE: 2018
